FAERS Safety Report 9363569 (Version 1)
Quarter: 2013Q2

REPORT INFORMATION
  Report Type: Report from Study
  Country: AR (occurrence: AR)
  Receive Date: 20130624
  Receipt Date: 20130624
  Transmission Date: 20140414
  Serious: Yes (Other)
  Sender: FDA-Public Use
  Company Number: PHHY2013AR063890

PATIENT
  Sex: Female

DRUGS (3)
  1. ONBREZ [Suspect]
     Indication: CHRONIC OBSTRUCTIVE PULMONARY DISEASE
     Dosage: 150 UG, QD
     Dates: start: 201303
  2. ONBREZ [Suspect]
     Indication: PNEUMONIA
  3. ONBREZ [Suspect]
     Indication: OFF LABEL USE

REACTIONS (2)
  - Skin cancer [Recovered/Resolved]
  - Neoplasm [Recovered/Resolved]
